FAERS Safety Report 24154460 (Version 2)
Quarter: 2024Q3

REPORT INFORMATION
  Report Type: Report from Study
  Country: US (occurrence: US)
  Receive Date: 20240731
  Receipt Date: 20240803
  Transmission Date: 20241017
  Serious: Yes (Hospitalization, Other)
  Sender: ABBVIE
  Company Number: US-ABBVIE-5857229

PATIENT
  Sex: Male

DRUGS (1)
  1. RINVOQ [Suspect]
     Active Substance: UPADACITINIB
     Indication: Rheumatoid arthritis
     Dosage: 15 MILLIGRAM
     Route: 048
     Dates: start: 2021

REACTIONS (6)
  - Myocardial infarction [Unknown]
  - Anaemia [Unknown]
  - Labyrinthitis [Unknown]
  - Haemoglobin abnormal [Unknown]
  - Arthritis [Unknown]
  - Haemorrhage [Unknown]
